FAERS Safety Report 4930811-5 (Version None)
Quarter: 2006Q1

REPORT INFORMATION
  Report Type: 
  Country: None (occurrence: None)
  Receive Date: 20060227
  Receipt Date: 20060221
  Transmission Date: 20060701
  Serious: Yes (Hospitalization)
  Sender: FDA-Public Use
  Company Number: USA-2006-0023605

PATIENT
  Age: 1 Year
  Sex: Male

DRUGS (1)
  1. CEFDITOREN PIVOXIL (SIMILAR TO NDA 21-222)(CEFDITOREN PIVOXIL) [Suspect]
     Indication: OTITIS MEDIA CHRONIC
     Dosage: 100 MG, DAILY, ORAL
     Route: 048
     Dates: start: 20050915, end: 20050918

REACTIONS (5)
  - CLOSTRIDIAL INFECTION [None]
  - FEBRILE CONVULSION [None]
  - GRANULOMA [None]
  - OTORRHOEA [None]
  - PHARYNGITIS [None]
